FAERS Safety Report 8575518-0 (Version None)
Quarter: 2012Q3

REPORT INFORMATION
  Report Type: 
  Country: None (occurrence: None)
  Receive Date: 20120807
  Receipt Date: 20120801
  Transmission Date: 20120928
  Serious: Yes (Other)
  Sender: FDA-Public Use
  Company Number: PHHY2012JP064275

PATIENT
  Sex: Male

DRUGS (2)
  1. RIVASTIGMINE [Suspect]
     Dosage: 18 MG, DAILY
     Route: 062
     Dates: start: 20120303, end: 20120723
  2. RIVASTIGMINE [Suspect]
     Indication: DEMENTIA ALZHEIMER'S TYPE
     Route: 062

REACTIONS (1)
  - SYNCOPE [None]
